FAERS Safety Report 22525405 (Version 1)
Quarter: 2023Q2

REPORT INFORMATION
  Report Type: Spontaneous
  Country: US (occurrence: US)
  Receive Date: 20230606
  Receipt Date: 20230606
  Transmission Date: 20230722
  Serious: No
  Sender: FDA-Public Use
  Company Number: US-BAYER-2023A078227

PATIENT

DRUGS (1)
  1. CLARITIN-D 12 HOUR [Suspect]
     Active Substance: LORATADINE\PSEUDOEPHEDRINE SULFATE
     Route: 048

REACTIONS (6)
  - Drug hypersensitivity [None]
  - Pharyngeal disorder [None]
  - Dyspnoea [None]
  - Lacrimation increased [None]
  - Rhinorrhoea [None]
  - Cough [None]
